FAERS Safety Report 15617975 (Version 2)
Quarter: 2018Q4

REPORT INFORMATION
  Report Type: Spontaneous
  Country: US (occurrence: US)
  Receive Date: 20181114
  Receipt Date: 20181119
  Transmission Date: 20190205
  Serious: Yes (Hospitalization)
  Sender: FDA-Public Use
  Company Number: US-VERTEX PHARMACEUTICALS-2018-008202

PATIENT
  Age: 11 Year
  Sex: Female

DRUGS (8)
  1. CEPHALEXIN                         /00145501/ [Concomitant]
     Active Substance: CEPHALEXIN
  2. BACTRIM [Concomitant]
     Active Substance: SULFAMETHOXAZOLE\TRIMETHOPRIM
  3. ORKAMBI [Suspect]
     Active Substance: IVACAFTOR\LUMACAFTOR
     Indication: CYSTIC FIBROSIS
     Dosage: 200/250 MG, (EACH) BID
     Route: 048
     Dates: start: 20180607
  4. CREON [Concomitant]
     Active Substance: PANCRELIPASE AMYLASE\PANCRELIPASE LIPASE\PANCRELIPASE PROTEASE
  5. PROAIR HFA [Concomitant]
     Active Substance: ALBUTEROL SULFATE
  6. SODIUM CHLORIDE. [Concomitant]
     Active Substance: SODIUM CHLORIDE
  7. PULMOZYME [Concomitant]
     Active Substance: DORNASE ALFA
  8. PARI [Concomitant]

REACTIONS (2)
  - Cystic fibrosis [Not Recovered/Not Resolved]
  - Nasal polypectomy [Recovering/Resolving]

NARRATIVE: CASE EVENT DATE: 201810
